FAERS Safety Report 8272483-0 (Version None)
Quarter: 2012Q2

REPORT INFORMATION
  Report Type: 
  Country: None (occurrence: None)
  Receive Date: 20120410
  Receipt Date: 20120221
  Transmission Date: 20120825
  Serious: No
  Sender: FDA-Public Use
  Company Number: US-ASTRAZENECA-2012SE11886

PATIENT
  Age: 51 Year
  Sex: Female
  Weight: 129.3 kg

DRUGS (1)
  1. NEXIUM IV [Suspect]
     Route: 042
     Dates: start: 20020404, end: 20120128

REACTIONS (2)
  - DRUG DOSE OMISSION [None]
  - BACK PAIN [None]
